FAERS Safety Report 21360093 (Version 5)
Quarter: 2025Q4

REPORT INFORMATION
  Report Type: Report from Study
  Country: EU (occurrence: EU)
  Receive Date: 20220921
  Receipt Date: 20251027
  Transmission Date: 20260118
  Serious: No
  Sender: BAUSCH AND LOMB
  Company Number: EU-SA-SAC20220823000444

PATIENT
  Age: 83 Year
  Sex: Male
  Weight: 65.5 kg

DRUGS (79)
  1. DEXAMETHASONE [Suspect]
     Active Substance: DEXAMETHASONE
     Indication: Plasma cell myeloma refractory
     Dosage: 20 MG, QW
     Route: 065
     Dates: start: 20220516, end: 20220606
  2. DEXAMETHASONE [Suspect]
     Active Substance: DEXAMETHASONE
     Dosage: 20 MG, QW
     Route: 065
     Dates: start: 20220718, end: 20220808
  3. DEXAMETHASONE [Suspect]
     Active Substance: DEXAMETHASONE
     Dosage: 20 MG, QW
     Route: 065
     Dates: start: 20220614, end: 20220712
  4. DEXAMETHASONE [Suspect]
     Active Substance: DEXAMETHASONE
     Dosage: 20 MG, QW
     Route: 065
     Dates: start: 20220822, end: 20220912
  5. DEXAMETHASONE [Suspect]
     Active Substance: DEXAMETHASONE
     Dosage: 20 MG, QW
     Route: 065
     Dates: start: 20220919, end: 20220919
  6. DEXAMETHASONE [Suspect]
     Active Substance: DEXAMETHASONE
     Dosage: 20 MG, QW AT 07:00
     Route: 065
     Dates: start: 20220516, end: 20220606
  7. DEXAMETHASONE [Suspect]
     Active Substance: DEXAMETHASONE
     Dosage: 20 MG, QW
     Route: 065
     Dates: start: 20220919, end: 20221010
  8. DEXAMETHASONE [Suspect]
     Active Substance: DEXAMETHASONE
     Dosage: 20 MG, QW
     Route: 065
     Dates: start: 20221017, end: 20221107
  9. DEXAMETHASONE [Suspect]
     Active Substance: DEXAMETHASONE
     Dosage: 20 MG, QW
     Route: 065
     Dates: start: 20240131, end: 20240221
  10. DEXAMETHASONE [Suspect]
     Active Substance: DEXAMETHASONE
     Dosage: 20 MG, QW
     Route: 065
     Dates: start: 20240228, end: 20240320
  11. DEXAMETHASONE [Suspect]
     Active Substance: DEXAMETHASONE
     Dosage: 20 MG, QW
     Route: 065
     Dates: start: 20250113, end: 20250203
  12. DEXAMETHASONE [Suspect]
     Active Substance: DEXAMETHASONE
     Dosage: 20 MG, QW
     Route: 065
     Dates: start: 20250210, end: 20250303
  13. DEXAMETHASONE [Suspect]
     Active Substance: DEXAMETHASONE
     Dosage: 20 MG, QW
     Route: 065
     Dates: start: 20250310, end: 20250331
  14. DEXAMETHASONE [Suspect]
     Active Substance: DEXAMETHASONE
     Dosage: 20 MG, QW
     Route: 065
     Dates: start: 20250428, end: 20250428
  15. DEXAMETHASONE [Suspect]
     Active Substance: DEXAMETHASONE
     Dosage: 20 MG, QW
     Route: 065
     Dates: start: 20250505, end: 20250526
  16. DEXAMETHASONE [Suspect]
     Active Substance: DEXAMETHASONE
     Dosage: 20 MG, QW
     Route: 065
     Dates: start: 20250601, end: 20250622
  17. DEXAMETHASONE [Suspect]
     Active Substance: DEXAMETHASONE
     Dosage: 20 MG, QW
     Route: 065
     Dates: start: 20250727, end: 20250817
  18. DEXAMETHASONE [Suspect]
     Active Substance: DEXAMETHASONE
     Dosage: 20 MG, QD
     Route: 065
     Dates: start: 20250825
  19. POMALIDOMIDE [Suspect]
     Active Substance: POMALIDOMIDE
     Indication: Plasma cell myeloma refractory
     Dosage: 4 MG, QD
     Route: 065
     Dates: start: 20220516, end: 20220605
  20. POMALIDOMIDE [Suspect]
     Active Substance: POMALIDOMIDE
     Dosage: 4 MG, QD
     Route: 065
     Dates: start: 20220718, end: 20220807
  21. POMALIDOMIDE [Suspect]
     Active Substance: POMALIDOMIDE
     Dosage: 4 MG, QD
     Route: 065
     Dates: start: 20220822
  22. POMALIDOMIDE [Suspect]
     Active Substance: POMALIDOMIDE
     Dosage: 4 MG, QD
     Route: 065
     Dates: start: 20220919, end: 20220919
  23. POMALIDOMIDE [Suspect]
     Active Substance: POMALIDOMIDE
     Dosage: 4 MG, QD AT 7:00
     Route: 065
     Dates: start: 20220516, end: 20220605
  24. POMALIDOMIDE [Suspect]
     Active Substance: POMALIDOMIDE
     Dosage: 2 MG, QD
     Route: 065
     Dates: start: 20220614, end: 20220704
  25. POMALIDOMIDE [Suspect]
     Active Substance: POMALIDOMIDE
     Dosage: 2 MG, QD
     Route: 065
     Dates: start: 20220718, end: 20220807
  26. POMALIDOMIDE [Suspect]
     Active Substance: POMALIDOMIDE
     Dosage: 2 MG, QD
     Route: 065
     Dates: start: 20220718, end: 20220807
  27. POMALIDOMIDE [Suspect]
     Active Substance: POMALIDOMIDE
     Dosage: 2 MG, QD
     Route: 065
     Dates: start: 20220919, end: 20221009
  28. POMALIDOMIDE [Suspect]
     Active Substance: POMALIDOMIDE
     Dosage: 2 MG, QD
     Route: 065
     Dates: start: 20221017, end: 20221106
  29. POMALIDOMIDE [Suspect]
     Active Substance: POMALIDOMIDE
     Dosage: 2 MG, QD
     Route: 065
     Dates: start: 20240201, end: 20240223
  30. POMALIDOMIDE [Suspect]
     Active Substance: POMALIDOMIDE
     Dosage: 2 MG, QD
     Route: 065
     Dates: start: 20240228, end: 20240319
  31. POMALIDOMIDE [Suspect]
     Active Substance: POMALIDOMIDE
     Dosage: 2 MG, QD
     Route: 065
     Dates: start: 20220815, end: 20220904
  32. ISATUXIMAB [Suspect]
     Active Substance: ISATUXIMAB
     Indication: Plasma cell myeloma refractory
     Dosage: 660 MG, BIW
     Route: 065
     Dates: start: 20220614, end: 20220710
  33. ISATUXIMAB [Suspect]
     Active Substance: ISATUXIMAB
     Dosage: 645 MG, BIW
     Route: 065
     Dates: start: 20220718, end: 20220814
  34. ISATUXIMAB [Suspect]
     Active Substance: ISATUXIMAB
     Dosage: 660 MG, QW
     Route: 065
     Dates: start: 20220516, end: 20220613
  35. ISATUXIMAB [Suspect]
     Active Substance: ISATUXIMAB
     Dosage: 640 MG, BIW
     Route: 065
     Dates: start: 20220822, end: 20220905
  36. ISATUXIMAB [Suspect]
     Active Substance: ISATUXIMAB
     Dosage: UNK, UNK, BIW
     Route: 065
     Dates: start: 20220815, end: 20220815
  37. ISATUXIMAB [Suspect]
     Active Substance: ISATUXIMAB
     Dosage: 640 MG, BIW
     Route: 065
     Dates: start: 20220919, end: 20221004
  38. ISATUXIMAB [Suspect]
     Active Substance: ISATUXIMAB
     Dosage: 635 MG, BIW
     Route: 065
     Dates: start: 20221114, end: 20221128
  39. ISATUXIMAB [Suspect]
     Active Substance: ISATUXIMAB
     Dosage: 635 MG, BIW
     Route: 065
     Dates: start: 20221212, end: 20221227
  40. ISATUXIMAB [Suspect]
     Active Substance: ISATUXIMAB
     Dosage: 635 MG, BIW
     Route: 065
     Dates: start: 20230110, end: 20230123
  41. ISATUXIMAB [Suspect]
     Active Substance: ISATUXIMAB
     Dosage: 645 MG, BIW
     Route: 065
     Dates: start: 20230213, end: 20230227
  42. ISATUXIMAB [Suspect]
     Active Substance: ISATUXIMAB
     Dosage: 645 MG, BIW
     Route: 065
     Dates: start: 20230313, end: 20230327
  43. ISATUXIMAB [Suspect]
     Active Substance: ISATUXIMAB
     Dosage: 660 MG, QW AT 08:00
     Route: 065
     Dates: start: 20220516, end: 20220613
  44. ISATUXIMAB [Suspect]
     Active Substance: ISATUXIMAB
     Dosage: 660 MG, BIW
     Route: 065
     Dates: start: 20220614, end: 20220710
  45. ISATUXIMAB [Suspect]
     Active Substance: ISATUXIMAB
     Dosage: 640 MG, BIW
     Route: 065
     Dates: start: 20220822, end: 20220905
  46. ISATUXIMAB [Suspect]
     Active Substance: ISATUXIMAB
     Dosage: 640 MG, BIW
     Route: 065
     Dates: start: 20221017, end: 20221031
  47. ISATUXIMAB [Suspect]
     Active Substance: ISATUXIMAB
     Dosage: 645 MG, BIW
     Route: 065
     Dates: start: 20230413, end: 20230424
  48. ISATUXIMAB [Suspect]
     Active Substance: ISATUXIMAB
     Dosage: 645 MG, BIW
     Route: 065
     Dates: start: 20230522, end: 20230605
  49. ISATUXIMAB [Suspect]
     Active Substance: ISATUXIMAB
     Dosage: 645 MG, BIW
     Route: 065
     Dates: start: 20230619, end: 20230703
  50. ISATUXIMAB [Suspect]
     Active Substance: ISATUXIMAB
     Dosage: 645 MG, BIW
     Route: 065
     Dates: start: 20230724, end: 20230807
  51. ISATUXIMAB [Suspect]
     Active Substance: ISATUXIMAB
     Dosage: 660 MG, BIW
     Route: 065
     Dates: start: 20230821, end: 20230904
  52. ISATUXIMAB [Suspect]
     Active Substance: ISATUXIMAB
     Dosage: 660 MG, BIW
     Route: 065
     Dates: start: 20230918, end: 20231002
  53. ISATUXIMAB [Suspect]
     Active Substance: ISATUXIMAB
     Dosage: 660 MG, BIW
     Route: 065
     Dates: start: 20231106, end: 20231120
  54. ISATUXIMAB [Suspect]
     Active Substance: ISATUXIMAB
     Dosage: 660 MG, BIW
     Route: 065
     Dates: start: 20231204, end: 20231218
  55. ISATUXIMAB [Suspect]
     Active Substance: ISATUXIMAB
     Dosage: 640 MG, BIW
     Route: 065
     Dates: start: 20240103, end: 20240115
  56. ISATUXIMAB [Suspect]
     Active Substance: ISATUXIMAB
     Dosage: 640 MG, BIW
     Route: 065
     Dates: start: 20240131, end: 20240214
  57. ISATUXIMAB [Suspect]
     Active Substance: ISATUXIMAB
     Dosage: 655 MG, BIW
     Route: 065
     Dates: start: 20240228, end: 20240313
  58. ISATUXIMAB [Suspect]
     Active Substance: ISATUXIMAB
     Dosage: 607 MG, BIW
     Route: 065
     Dates: start: 20241209, end: 20250115
  59. ISATUXIMAB [Suspect]
     Active Substance: ISATUXIMAB
     Dosage: 645 MG, BIW
     Route: 065
     Dates: start: 20250130, end: 20250213
  60. ISATUXIMAB [Suspect]
     Active Substance: ISATUXIMAB
     Dosage: 645 MG, BIW
     Route: 065
     Dates: start: 20250227, end: 20250313
  61. ISATUXIMAB [Suspect]
     Active Substance: ISATUXIMAB
     Dosage: 645 MG, BIW
     Route: 065
     Dates: start: 20250327, end: 20250410
  62. ISATUXIMAB [Suspect]
     Active Substance: ISATUXIMAB
     Dosage: 650 MG, BIW
     Route: 065
     Dates: start: 20250424, end: 20250508
  63. ISATUXIMAB [Suspect]
     Active Substance: ISATUXIMAB
     Dosage: 640 MG, BIW
     Route: 065
     Dates: start: 20250703, end: 20250703
  64. ISATUXIMAB [Suspect]
     Active Substance: ISATUXIMAB
     Dosage: 640 MG, BIW
     Route: 065
     Dates: start: 20250717, end: 20250717
  65. ISATUXIMAB [Suspect]
     Active Substance: ISATUXIMAB
     Dosage: 640 MG, BIW
     Route: 065
     Dates: start: 20250814, end: 20250828
  66. ISATUXIMAB [Suspect]
     Active Substance: ISATUXIMAB
     Dosage: 640 MG, BIW
     Route: 065
     Dates: start: 20250911
  67. RAMIPRIL [Concomitant]
     Active Substance: RAMIPRIL
     Indication: Cardiac failure
     Dosage: UNK
     Dates: start: 20220601
  68. NIFEDIPINE [Concomitant]
     Active Substance: NIFEDIPINE
     Indication: Raynaud^s phenomenon
     Dosage: UNK
     Dates: start: 20210429
  69. SIMVASTATIN [Concomitant]
     Active Substance: SIMVASTATIN
     Indication: Hyperlipidaemia
     Dates: start: 20210429
  70. JARDIANCE [Concomitant]
     Active Substance: EMPAGLIFLOZIN
     Indication: Cardiac failure
     Dosage: UNK
     Dates: start: 20220627
  71. TROSPIUM CHLORIDE [Concomitant]
     Active Substance: TROSPIUM CHLORIDE
     Indication: Benign prostatic hyperplasia
     Dosage: UNK
     Dates: start: 20210429
  72. CHOLECALCIFEROL [Concomitant]
     Active Substance: CHOLECALCIFEROL
     Indication: Vitamin D deficiency
     Dosage: UNK
     Dates: start: 20100920
  73. TAMSULOSIN HYDROCHLORIDE [Concomitant]
     Active Substance: TAMSULOSIN HYDROCHLORIDE
     Indication: Benign prostatic hyperplasia
     Dosage: UNK
     Dates: start: 20220504
  74. FILGRASTIM [Concomitant]
     Active Substance: FILGRASTIM
     Indication: Prophylaxis
     Dosage: UNK
     Dates: start: 20220906, end: 20220907
  75. ACETAMINOPHEN [Concomitant]
     Active Substance: ACETAMINOPHEN
     Indication: Prophylaxis
     Dosage: UNK, QCY, CYCLICAL
     Dates: start: 20220516
  76. PROMETHAZINE HYDROCHLORIDE [Concomitant]
     Active Substance: PROMETHAZINE HYDROCHLORIDE
     Indication: Prophylaxis
     Dosage: UNK, QCY, CYCLICAL
     Dates: start: 20220516
  77. COTRIM [Concomitant]
     Active Substance: SULFAMETHOXAZOLE\TRIMETHOPRIM
     Indication: Infection prophylaxis
     Dosage: UNK, QCY, CYCLICAL
     Dates: start: 20220516
  78. METAMIZOLE SODIUM [Concomitant]
     Active Substance: METAMIZOLE SODIUM
     Indication: Product used for unknown indication
     Dosage: UNK
     Dates: start: 20221227
  79. ACYCLOVIR [Concomitant]
     Active Substance: ACYCLOVIR
     Indication: Prophylaxis
     Dosage: UNK, QCY, CYCLICAL
     Dates: start: 20220516

REACTIONS (4)
  - Neutropenia [Recovered/Resolved]
  - Norovirus infection [Recovered/Resolved]
  - Oedema peripheral [Not Recovered/Not Resolved]
  - Nausea [Recovered/Resolved]

NARRATIVE: CASE EVENT DATE: 20220801
